FAERS Safety Report 7608698-1 (Version None)
Quarter: 2011Q3

REPORT INFORMATION
  Report Type: 
  Country: None (occurrence: None)
  Receive Date: 20110713
  Receipt Date: 20110713
  Transmission Date: 20111222
  Serious: No
  Sender: FDA-Public Use
  Company Number: None

PATIENT
  Age: 67 Year
  Sex: Male
  Weight: 110.6777 kg

DRUGS (8)
  1. ALBUTEROL SULFATE AUTOHALER [Concomitant]
  2. LYRICA [Suspect]
     Indication: NEUROPATHY PERIPHERAL
     Dosage: 25 MG TWICE DAILY PO
     Route: 048
     Dates: start: 20100916, end: 20110711
  3. OXYCODONE HCL AND ACETAMINOPHEN [Concomitant]
  4. OMEPRAZOLE [Concomitant]
  5. PLAVIX [Concomitant]
  6. OXYCONTIN [Concomitant]
  7. BENAZEPRIL HYDROCHLORIDE [Concomitant]
  8. FUROSEMIDE [Concomitant]

REACTIONS (2)
  - CARDIAC DISORDER [None]
  - DYSPNOEA EXERTIONAL [None]
